FAERS Safety Report 17735621 (Version 2)
Quarter: 2020Q2

REPORT INFORMATION
  Report Type: Spontaneous
  Country: US (occurrence: US)
  Receive Date: 20200501
  Receipt Date: 20200618
  Transmission Date: 20200714
  Serious: Yes (Other)
  Sender: FDA-Public Use
  Company Number: US-REGENERON PHARMACEUTICALS, INC.-2020-34633

PATIENT

DRUGS (1)
  1. EYLEA [Suspect]
     Active Substance: AFLIBERCEPT
     Indication: NEOVASCULAR AGE-RELATED MACULAR DEGENERATION
     Dosage: TOTAL OF 14 DOSES OF EYLEA TO RIGHT EYE, LAST DOSE PRIOR THE EVENT WAS 4 WEEKS PRIOR THE PRESENTATIO

REACTIONS (3)
  - Cataract nuclear [Unknown]
  - Endophthalmitis [Recovering/Resolving]
  - Blindness unilateral [Recovered/Resolved]
